FAERS Safety Report 5190810-8 (Version None)
Quarter: 2006Q4

REPORT INFORMATION
  Report Type: 
  Country: None (occurrence: None)
  Receive Date: 20061215
  Receipt Date: 20061026
  Transmission Date: 20070319
  Serious: No
  Sender: FDA-Public Use
  Company Number: S06-ITA-04107-01

PATIENT
  Age: 75 Year
  Sex: Male

DRUGS (4)
  1. MEMANTINE HCL [Suspect]
     Indication: DEMENTIA ALZHEIMER'S TYPE
     Dosage: 10 MG BID PO
     Route: 048
     Dates: start: 20051117, end: 20051202
  2. QUETIAPINE FUMARATE [Suspect]
     Indication: DEMENTIA
     Dosage: 50 MG QD PO
     Route: 048
     Dates: start: 20050701, end: 20051202
  3. QUETIAPINE FUMARATE [Suspect]
     Indication: DEMENTIA
     Dosage: 50 MG QD PO
     Route: 048
     Dates: start: 20051205
  4. VALPROIC ACID [Concomitant]

REACTIONS (6)
  - ANAL SPHINCTER ATONY [None]
  - ELECTROCARDIOGRAM ST SEGMENT ABNORMAL [None]
  - ELECTROENCEPHALOGRAM ABNORMAL [None]
  - LOSS OF CONSCIOUSNESS [None]
  - MALAISE [None]
  - TRISMUS [None]
